FAERS Safety Report 12105961 (Version 4)
Quarter: 2016Q3

REPORT INFORMATION
  Report Type: Report from Study
  Country: DE (occurrence: DE)
  Receive Date: 20160223
  Receipt Date: 20160728
  Transmission Date: 20161109
  Serious: Yes (Death, Hospitalization, Other)
  Sender: FDA-Public Use
  Company Number: DE-INCYTE CORPORATION-2016IN000899

PATIENT
  Sex: Female

DRUGS (1)
  1. INCB018424 [Suspect]
     Active Substance: RUXOLITINIB
     Indication: PRIMARY MYELOFIBROSIS
     Dosage: 15 MG, BID
     Route: 048
     Dates: start: 20121112, end: 20150213

REACTIONS (2)
  - Metastatic bronchial carcinoma [Fatal]
  - Myelodysplastic syndrome unclassifiable [Unknown]

NARRATIVE: CASE EVENT DATE: 20150130
